FAERS Safety Report 5460100-4 (Version None)
Quarter: 2007Q3

REPORT INFORMATION
  Report Type: 
  Country: None (occurrence: None)
  Receive Date: 20070919
  Receipt Date: 20070518
  Transmission Date: 20080115
  Serious: No
  Sender: FDA-Public Use
  Company Number: US-ASTRAZENECA-2007UW12411

PATIENT
  Age: 54 Year
  Sex: Female
  Weight: 79.4 kg

DRUGS (11)
  1. SEROQUEL [Suspect]
     Indication: INSOMNIA
     Route: 048
     Dates: start: 20061101, end: 20070514
  2. SEROQUEL [Suspect]
     Indication: BIPOLAR II DISORDER
     Route: 048
     Dates: start: 20061101, end: 20070514
  3. SEROQUEL [Suspect]
     Indication: ANXIETY
     Route: 048
     Dates: start: 20061101, end: 20070514
  4. SEROQUEL [Suspect]
     Route: 048
     Dates: start: 20070315
  5. SEROQUEL [Suspect]
     Route: 048
     Dates: start: 20070315
  6. SEROQUEL [Suspect]
     Route: 048
     Dates: start: 20070315
  7. LAMICTAL [Concomitant]
  8. LAMICTAL [Concomitant]
     Dates: start: 20070515
  9. CYMBALTA [Concomitant]
  10. CRESTOR [Concomitant]
  11. TOPROL-XL [Concomitant]

REACTIONS (2)
  - BLOOD GLUCOSE ABNORMAL [None]
  - HYPERSOMNIA [None]
